FAERS Safety Report 9475044 (Version 1)
Quarter: 2013Q3

REPORT INFORMATION
  Report Type: Spontaneous
  Country: GB (occurrence: None)
  Receive Date: 20130820
  Receipt Date: 20130820
  Transmission Date: 20140515
  Serious: Yes (Other)
  Sender: FDA-Public Use
  Company Number: 1678388

PATIENT
  Age: 42 Year
  Sex: Male
  Weight: 80 kg

DRUGS (22)
  1. DEXMEDETOMIDINE HYDROCHLORIDE [Suspect]
     Indication: SEDATION
     Dates: start: 20130214, end: 20130218
  2. CHLORHEXIDINE [Concomitant]
  3. CLARITHROMYCIN [Concomitant]
  4. ENOXAPARIN [Concomitant]
  5. AMOXICILLIN W/ CLAVULANATE POTASSIUM [Concomitant]
  6. SULFAMETHOXAZOLE W/TRIMETHOPRIM [Concomitant]
  7. FUROSEMIDE [Concomitant]
  8. HALOPERIDOL [Concomitant]
  9. HYDROCORTISONE [Concomitant]
  10. LACTULOSE [Concomitant]
  11. LEVOFLOXACIN [Concomitant]
  12. MIDAZOLAM [Concomitant]
  13. NORADRENALINE [Concomitant]
  14. OMEPRAZOLE [Concomitant]
  15. PABRINEX [Concomitant]
  16. ACTRAPID [Concomitant]
  17. PREDNISOLONE [Concomitant]
  18. PROPOFOL [Concomitant]
  19. QUETIAPINE [Concomitant]
  20. OSELTAMIVIR PHOSPHATE [Concomitant]
  21. PIPERACILLIN/TAZOBACTAM [Concomitant]
  22. REMIFENTANIL [Concomitant]

REACTIONS (3)
  - Tachypnoea [None]
  - Ileus [None]
  - Tachycardia [None]
